FAERS Safety Report 19742845 (Version 1)
Quarter: 2021Q3

REPORT INFORMATION
  Report Type: Spontaneous
  Country: US (occurrence: US)
  Receive Date: 20210823
  Receipt Date: 20210823
  Transmission Date: 20211014
  Serious: Yes (Death)
  Sender: FDA-Public Use
  Company Number: None

PATIENT
  Sex: Male

DRUGS (2)
  1. NO DRUG NAME [Concomitant]
  2. TADALAFIL 20 MG TAB [Suspect]
     Active Substance: TADALAFIL
     Indication: ESSENTIAL HYPERTENSION
     Dosage: ?          OTHER FREQUENCY:SEE B6{PAGE2};?
     Route: 048

REACTIONS (1)
  - Death [None]
